FAERS Safety Report 16553282 (Version 4)
Quarter: 2019Q4

REPORT INFORMATION
  Report Type: Spontaneous
  Country: DE (occurrence: DE)
  Receive Date: 20190710
  Receipt Date: 20191203
  Transmission Date: 20200122
  Serious: Yes (Other)
  Sender: FDA-Public Use
  Company Number: DE-BRACCO-2019DE03224

PATIENT
  Age: 29 Year
  Sex: Female
  Weight: 48 kg

DRUGS (3)
  1. MULTIHANCE [Suspect]
     Active Substance: GADOBENATE DIMEGLUMINE
     Indication: MAGNETIC RESONANCE IMAGING BRAIN
     Dosage: UNK UNK, SINGLE
     Dates: start: 20181122, end: 20181122
  2. GADOVIST [Suspect]
     Active Substance: GADOBUTROL
     Indication: MAGNETIC RESONANCE IMAGING
     Dosage: 5ML, SINGLE, AFTER SURGERY
     Route: 042
     Dates: start: 20181017, end: 20181017
  3. GADOVIST [Suspect]
     Active Substance: GADOBUTROL
     Indication: MAGNETIC RESONANCE IMAGING ABDOMINAL
     Dosage: UNK UNK, SINGLE, BEFORE SURGERY
     Route: 042
     Dates: start: 20180823, end: 20180823

REACTIONS (7)
  - Burning sensation [Recovered/Resolved with Sequelae]
  - Gadolinium deposition disease [Unknown]
  - Pain [Recovered/Resolved with Sequelae]
  - Contrast media toxicity [Unknown]
  - Contrast media deposition [Unknown]
  - Arthralgia [Recovering/Resolving]
  - Paraesthesia [Recovered/Resolved with Sequelae]

NARRATIVE: CASE EVENT DATE: 2018
